FAERS Safety Report 5710052-4 (Version None)
Quarter: 2008Q2

REPORT INFORMATION
  Report Type: 
  Country: None (occurrence: None)
  Receive Date: 20080418
  Receipt Date: 20071001
  Transmission Date: 20081010
  Serious: No
  Sender: FDA-Public Use
  Company Number: US-ASTRAZENECA-2007UW22884

PATIENT
  Age: 54 Year
  Sex: Male
  Weight: 104.3 kg

DRUGS (3)
  1. TOPROL-XL [Suspect]
     Indication: HYPERTENSION
     Route: 048
  2. GLIPIZIDE [Concomitant]
  3. JANUVIA [Concomitant]

REACTIONS (5)
  - ARTHRALGIA [None]
  - COUGH [None]
  - FATIGUE [None]
  - INSOMNIA [None]
  - WEIGHT INCREASED [None]
